FAERS Safety Report 7438415-X (Version None)
Quarter: 2011Q2

REPORT INFORMATION
  Report Type: 
  Country: None (occurrence: None)
  Receive Date: 20110426
  Receipt Date: 20110404
  Transmission Date: 20111010
  Serious: Yes (Hospitalization)
  Sender: FDA-Public Use
  Company Number: US-BAYER-201010677NA

PATIENT
  Age: 28 Year
  Sex: Female
  Weight: 97.052 kg

DRUGS (12)
  1. YAZ [Suspect]
     Indication: MENORRHAGIA
  2. PROPO-N/APAP [Concomitant]
  3. ASPIRIN [Concomitant]
  4. IBUPROFEN [Concomitant]
  5. SOMA [Concomitant]
  6. DARVOCET [Concomitant]
  7. VALIUM [Concomitant]
  8. ACCUTANE [Concomitant]
  9. ACETAMINOPHEN [Concomitant]
  10. TRAMADOL [Concomitant]
  11. YAZ [Suspect]
     Indication: ACNE
     Dosage: 1 DF (DAILY DOSE), QD, ORAL
     Route: 048
     Dates: start: 20070901, end: 20071201
  12. DIAZEPAM [Concomitant]

REACTIONS (2)
  - PULMONARY EMBOLISM [None]
  - DEEP VEIN THROMBOSIS [None]
